FAERS Safety Report 8387503 (Version 2)
Quarter: 2012Q4

REPORT INFORMATION
  Report Type: 
  Country: JP (occurrence: JP)
  Receive Date: 20120202
  Receipt Date: 20120919
  Transmission Date: 20130627
  Serious: Yes (Other)
  Sender: FDA-Public Use
  Company Number: JP-ROCHE-1034214

PATIENT
  Age: 48 Year
  Sex: Male

DRUGS (5)
  1. RITUXIMAB [Suspect]
     Indication: LYMPHOMA
     Route: 042
  2. CYCLOPHOSPHAMIDE [Concomitant]
  3. DOXORUBICIN [Concomitant]
  4. VINCRISTINE SULFATE [Concomitant]
  5. PREDNISOLONE [Concomitant]

REACTIONS (2)
  - Radiation retinopathy [Unknown]
  - Optic neuropathy [Unknown]
